FAERS Safety Report 9867131 (Version 1)
Quarter: 2014Q1

REPORT INFORMATION
  Report Type: Spontaneous
  Country: US (occurrence: None)
  Receive Date: 20140131
  Receipt Date: 20140131
  Transmission Date: 20141002
  Serious: Yes (Death)
  Sender: FDA-Public Use
  Company Number: UTC-043992

PATIENT
  Age: 77 Year
  Sex: Male

DRUGS (3)
  1. TYVASO [Suspect]
     Indication: PULMONARY ARTERIAL HYPERTENSION
     Dosage: 4 IN 1 D,
     Route: 055
     Dates: start: 20111107
  2. PRACLEER (BOSENTAN)(UNKNOWN) [Concomitant]
  3. COUMADIN (WARFARIN) (UNKNOWN) [Concomitant]

REACTIONS (1)
  - Death [None]
